FAERS Safety Report 4796782-X (Version None)
Quarter: 2005Q3

REPORT INFORMATION
  Report Type: 
  Country: None (occurrence: None)
  Receive Date: 20050916
  Receipt Date: 20050427
  Transmission Date: 20060218
  Serious: Yes (Hospitalization)
  Sender: FDA-Public Use
  Company Number: US-JNJFOC-20050401992

PATIENT
  Age: 15 Year
  Sex: Female
  Weight: 62.1428 kg

DRUGS (3)
  1. TOPAMAX [Suspect]
     Indication: CONVULSION PROPHYLAXIS
     Dosage: ORAL
     Route: 048
  2. DILANTIN [Suspect]
     Indication: CONVULSION
     Dosage: 300 MG,  IN 1 DAY,
     Dates: start: 20050304, end: 20050401
  3. DEPAKOTE [Concomitant]

REACTIONS (1)
  - STEVENS-JOHNSON SYNDROME [None]
